FAERS Safety Report 5384656-5 (Version None)
Quarter: 2007Q3

REPORT INFORMATION
  Report Type: 
  Country: None (occurrence: None)
  Receive Date: 20070711
  Receipt Date: 20070517
  Transmission Date: 20080115
  Serious: No
  Sender: FDA-Public Use
  Company Number: LUP-0128

PATIENT
  Age: 54 Year
  Sex: Female

DRUGS (2)
  1. LISINOPRIL [Suspect]
     Indication: HYPERTENSION
     Dosage: (30 MG EVERY DAY),ORAL
     Route: 048
     Dates: start: 20070430
  2. GEMFBRIZOL (GEMFIBROZIL) [Concomitant]

REACTIONS (1)
  - BLISTER [None]
